FAERS Safety Report 17403480 (Version 1)
Quarter: 2020Q1

REPORT INFORMATION
  Report Type: Spontaneous
  Country: US (occurrence: US)
  Receive Date: 20200211
  Receipt Date: 20200211
  Transmission Date: 20200409
  Serious: No
  Sender: FDA-Public Use
  Company Number: US-AMAG PHARMACEUTICALS, INC.-AMAG202000443

PATIENT
  Age: 48 Year
  Sex: Female
  Weight: 62.65 kg

DRUGS (1)
  1. VYLEESI [Suspect]
     Active Substance: BREMELANOTIDE ACETATE
     Indication: LIBIDO DECREASED
     Dosage: UNK
     Route: 058
     Dates: start: 202001

REACTIONS (1)
  - Product dose omission [Unknown]
